FAERS Safety Report 4707101-9 (Version None)
Quarter: 2005Q3

REPORT INFORMATION
  Report Type: 
  Country: None (occurrence: None)
  Receive Date: 20050706
  Receipt Date: 20050415
  Transmission Date: 20060218
  Serious: Yes (Hospitalization)
  Sender: FDA-Public Use
  Company Number: PHBS2005JP05433

PATIENT
  Age: 7 Year
  Sex: Female
  Weight: 20 kg

DRUGS (3)
  1. RITALIN [Suspect]
     Indication: AUTISM
     Route: 048
     Dates: start: 20030501, end: 20050301
  2. RITALIN [Suspect]
     Indication: AUTISM
     Dosage: 20 MG/D
     Route: 048
     Dates: start: 20050301, end: 20050412
  3. DEPROMEL [Suspect]
     Indication: AUTISM
     Dosage: 50 MG/D
     Route: 048
     Dates: start: 20050301, end: 20050412

REACTIONS (7)
  - CATAPLEXY [None]
  - EYE ROLLING [None]
  - HYPERVENTILATION [None]
  - LOSS OF CONSCIOUSNESS [None]
  - TIC [None]
  - TONIC CONVULSION [None]
  - TREMOR [None]
